FAERS Safety Report 7926778-8 (Version None)
Quarter: 2011Q4

REPORT INFORMATION
  Report Type: 
  Country: None (occurrence: None)
  Receive Date: 20111118
  Receipt Date: 20111115
  Transmission Date: 20120403
  Serious: Yes (Other)
  Sender: FDA-Public Use
  Company Number: IT-JNJFOC-20111106689

PATIENT
  Age: 56 Year
  Sex: Female

DRUGS (4)
  1. ARAVA [Concomitant]
     Route: 048
  2. MEDROL [Concomitant]
     Route: 048
  3. PANTOPRAZOLE SODIUM [Concomitant]
     Route: 048
  4. SIMPONI [Suspect]
     Indication: RHEUMATOID ARTHRITIS
     Route: 058
     Dates: start: 20111110

REACTIONS (1)
  - AMNESIA [None]
